FAERS Safety Report 16034661 (Version 1)
Quarter: 2019Q1

REPORT INFORMATION
  Report Type: Spontaneous
  Country: US (occurrence: US)
  Receive Date: 20190305
  Receipt Date: 20190305
  Transmission Date: 20190418
  Serious: No
  Sender: FDA-Public Use
  Company Number: US-DRREDDYS-USA/USA/19/0108250

PATIENT
  Sex: Female

DRUGS (2)
  1. AMERGE [Interacting]
     Active Substance: NARATRIPTAN HYDROCHLORIDE
     Indication: PRODUCT USED FOR UNKNOWN INDICATION
  2. ZEMBRACE SYMTOUCH [Suspect]
     Active Substance: SUMATRIPTAN SUCCINATE
     Indication: MIGRAINE
     Dosage: 3 MG BASE PER 0.5 ML
     Route: 058

REACTIONS (4)
  - Drug interaction [Unknown]
  - Underdose [Unknown]
  - Application site erythema [Unknown]
  - Product quality issue [Unknown]
